FAERS Safety Report 12686127 (Version 1)
Quarter: 2016Q3

REPORT INFORMATION
  Report Type: Spontaneous
  Country: US (occurrence: US)
  Receive Date: 20160825
  Receipt Date: 20160825
  Transmission Date: 20161109
  Serious: No
  Sender: FDA-Public Use
  Company Number: US-PERRIGO-15US008082

PATIENT
  Age: 28 Year
  Sex: Male
  Weight: 81.63 kg

DRUGS (1)
  1. NICOTINE POLACRILEX [Suspect]
     Active Substance: NICOTINE
     Indication: SMOKING CESSATION THERAPY
     Dosage: 2 MG, EVERY 2 TO 4 HOURS
     Route: 002
     Dates: start: 20150330

REACTIONS (2)
  - Incorrect dose administered [Not Recovered/Not Resolved]
  - Nicotine dependence [Unknown]

NARRATIVE: CASE EVENT DATE: 20150330
